FAERS Safety Report 6420556-7 (Version None)
Quarter: 2009Q4

REPORT INFORMATION
  Report Type: 
  Country: None (occurrence: None)
  Receive Date: 20091029
  Receipt Date: 20091023
  Transmission Date: 20100525
  Serious: Yes (Hospitalization, Other)
  Sender: FDA-Public Use
  Company Number: US-GENENTECH-293022

PATIENT
  Age: 13 Year
  Sex: Female

DRUGS (2)
  1. RITUXAN [Suspect]
     Indication: GLOMERULONEPHRITIS PROLIFERATIVE
     Dosage: 375 MG/M2, UNK
  2. RITUXAN [Suspect]
     Indication: THROMBOCYTOPENIC PURPURA

REACTIONS (1)
  - REVERSIBLE POSTERIOR LEUKOENCEPHALOPATHY SYNDROME [None]
